FAERS Safety Report 4574432-5 (Version None)
Quarter: 2005Q1

REPORT INFORMATION
  Report Type: 
  Country: None (occurrence: None)
  Receive Date: 20050208
  Receipt Date: 19980421
  Transmission Date: 20050727
  Serious: Yes (Other)
  Sender: FDA-Public Use
  Company Number: US-GLAXOSMITHKLINE-A0281869A

PATIENT
  Age: 48 Year
  Sex: Female
  Weight: 75.28 kg

DRUGS (3)
  1. PAXIL [Suspect]
     Route: 048
     Dates: start: 19970301
  2. FIORINAL [Concomitant]
     Indication: MIGRAINE
     Route: 048
  3. IMITREX [Concomitant]

REACTIONS (9)
  - DEPENDENCE [None]
  - DISTURBANCE IN ATTENTION [None]
  - DRUG WITHDRAWAL SYNDROME [None]
  - EMOTIONAL DISTRESS [None]
  - FEELING OF DESPAIR [None]
  - MEMORY IMPAIRMENT [None]
  - TREMOR [None]
  - VOMITING [None]
  - WEIGHT INCREASED [None]
